FAERS Safety Report 11417443 (Version 3)
Quarter: 2015Q4

REPORT INFORMATION
  Report Type: Spontaneous
  Country: US (occurrence: US)
  Receive Date: 20150825
  Receipt Date: 20151120
  Transmission Date: 20160304
  Serious: No
  Sender: FDA-Public Use
  Company Number: US-PFIZER INC-2015278267

PATIENT
  Age: 77 Year
  Sex: Female
  Weight: 70 kg

DRUGS (12)
  1. REMODULIN [Suspect]
     Active Substance: TREPROSTINIL
     Dosage: UNK
  2. ORENITRAM [Suspect]
     Active Substance: TREPROSTINIL
     Dosage: UNK
  3. ORENITRAM [Suspect]
     Active Substance: TREPROSTINIL
     Dosage: UNK, 4X/DAY
  4. LETAIRIS [Suspect]
     Active Substance: AMBRISENTAN
     Dosage: UNK
  5. ORENITRAM [Suspect]
     Active Substance: TREPROSTINIL
     Indication: PULMONARY HYPERTENSION
     Dosage: 4.5 MG, DAILY
     Route: 048
     Dates: start: 20150727
  6. ORENITRAM [Suspect]
     Active Substance: TREPROSTINIL
     Dosage: UNK, 3X/DAY
     Dates: start: 20150901
  7. REMODULIN [Suspect]
     Active Substance: TREPROSTINIL
     Indication: PULMONARY ARTERIAL HYPERTENSION
     Dosage: 60 NG/KG/MIN CONTINEOUS
     Route: 058
     Dates: start: 20130725
  8. ORENITRAM [Suspect]
     Active Substance: TREPROSTINIL
     Dosage: 12 MG, 3X/DAY
     Route: 048
     Dates: start: 20150727
  9. ORENITRAM [Suspect]
     Active Substance: TREPROSTINIL
     Dosage: 8.75 MG, 1X/DAY
     Route: 048
  10. REVATIO [Suspect]
     Active Substance: SILDENAFIL CITRATE
     Indication: PULMONARY ARTERIAL HYPERTENSION
     Dosage: UNK
  11. ORENITRAM [Suspect]
     Active Substance: TREPROSTINIL
     Dosage: UNK
  12. ORENITRAM [Suspect]
     Active Substance: TREPROSTINIL
     Dosage: 12 MG, 3X/DAY
     Route: 048

REACTIONS (19)
  - Infusion site induration [Unknown]
  - Infusion site nodule [Unknown]
  - Faeces discoloured [Unknown]
  - Infusion site rash [Unknown]
  - Vomiting [Recovered/Resolved]
  - Flushing [Unknown]
  - Malaise [Unknown]
  - Condition aggravated [Not Recovered/Not Resolved]
  - Chills [Unknown]
  - Rash [Unknown]
  - Infusion site pain [Unknown]
  - Irritable bowel syndrome [Unknown]
  - Diarrhoea [Unknown]
  - Nausea [Recovered/Resolved]
  - Skin warm [Unknown]
  - Sinus congestion [Not Recovered/Not Resolved]
  - Tremor [Unknown]
  - Throat irritation [Recovered/Resolved]
  - Abdominal pain [Unknown]

NARRATIVE: CASE EVENT DATE: 2015
